FAERS Safety Report 22535848 (Version 1)
Quarter: 2023Q2

REPORT INFORMATION
  Report Type: Spontaneous
  Country: US (occurrence: None)
  Receive Date: 20230607
  Receipt Date: 20230607
  Transmission Date: 20230721
  Serious: Yes (Other)
  Sender: FDA-Public Use
  Company Number: None

PATIENT
  Age: 59 Year
  Sex: Male
  Weight: 67.95 kg

DRUGS (1)
  1. TEPEZZA [Suspect]
     Active Substance: TEPROTUMUMAB-TRBW
     Indication: Endocrine ophthalmopathy
     Dosage: OTHER FREQUENCY : EVERY 3 WEEKS;?
     Route: 042
     Dates: start: 20230314, end: 20230606

REACTIONS (8)
  - Diarrhoea [None]
  - Dry skin [None]
  - Taste disorder [None]
  - Muscle spasms [None]
  - Alopecia [None]
  - Infusion related reaction [None]
  - Deafness [None]
  - Therapy cessation [None]

NARRATIVE: CASE EVENT DATE: 20230530
